FAERS Safety Report 5363634-6 (Version None)
Quarter: 2007Q2

REPORT INFORMATION
  Report Type: 
  Country: None (occurrence: None)
  Receive Date: 20070618
  Receipt Date: 20070618
  Transmission Date: 20071010
  Serious: Yes (Hospitalization)
  Sender: FDA-Public Use
  Company Number: None

PATIENT
  Sex: Female
  Weight: 108.2 kg

DRUGS (2)
  1. CARBOPLATIN [Suspect]
     Dosage: 653 MG
  2. TAXOL [Suspect]
     Dosage: 350 MG

REACTIONS (7)
  - ABSCESS [None]
  - ADENOCARCINOMA [None]
  - CATHETER SITE ERYTHEMA [None]
  - CATHETER SITE RELATED REACTION [None]
  - EFFUSION [None]
  - METASTASIS [None]
  - NEUTROPENIA [None]
